FAERS Safety Report 8142427-0 (Version None)
Quarter: 2012Q1

REPORT INFORMATION
  Report Type: 
  Country: None (occurrence: None)
  Receive Date: 20120216
  Receipt Date: 20120209
  Transmission Date: 20120608
  Serious: Yes (Hospitalization, Other)
  Sender: FDA-Public Use
  Company Number: ES-ROXANE LABORATORIES, INC.-2012-RO-00631RO

PATIENT
  Age: 49 Year

DRUGS (4)
  1. OXYCODONE QUICK RELEASE [Suspect]
     Indication: NEURALGIA
  2. OXCARBAZEPINE [Suspect]
     Indication: NEURALGIA
  3. SLOW RELEASE OXYCODONE [Suspect]
     Indication: NEURALGIA
  4. AMITRIPTYLINE HCL [Suspect]
     Indication: NEURALGIA

REACTIONS (4)
  - PULMONARY TOXICITY [None]
  - INTERSTITIAL LUNG DISEASE [None]
  - ACUTE RESPIRATORY DISTRESS SYNDROME [None]
  - ORGANISING PNEUMONIA [None]
